FAERS Safety Report 6235534-0 (Version None)
Quarter: 2009Q2

REPORT INFORMATION
  Report Type: 
  Country: None (occurrence: None)
  Receive Date: 20090618
  Receipt Date: 20081030
  Transmission Date: 20091009
  Serious: No
  Sender: FDA-Public Use
  Company Number: US-ASTRAZENECA-2008UW24283

PATIENT
  Age: 80 Year
  Sex: Female
  Weight: 70.3 kg

DRUGS (3)
  1. RHINOCORT [Suspect]
     Indication: HYPERSENSITIVITY
     Dosage: 32 MCG
     Route: 045
     Dates: start: 20081027
  2. FLU SHOT [Suspect]
     Indication: INFLUENZA IMMUNISATION
     Dosage: ONE DOSE
     Route: 065
     Dates: start: 20081027
  3. DID NOT WANT TO PROVIDE [Concomitant]

REACTIONS (2)
  - INFLUENZA LIKE ILLNESS [None]
  - OROPHARYNGEAL PAIN [None]
